FAERS Safety Report 25256196 (Version 3)
Quarter: 2025Q2

REPORT INFORMATION
  Report Type: Spontaneous
  Country: US (occurrence: US)
  Receive Date: 20250430
  Receipt Date: 20250626
  Transmission Date: 20250716
  Serious: No
  Sender: BLUEPRINT MEDICINES
  Company Number: US-Blueprint Medicines Corporation-2025-AER-00861

PATIENT
  Age: 71 Year
  Sex: Female

DRUGS (1)
  1. AYVAKIT [Suspect]
     Active Substance: AVAPRITINIB
     Indication: Gastrointestinal stromal tumour
     Route: 065
     Dates: start: 20250116

REACTIONS (11)
  - Rash pruritic [Unknown]
  - Miliaria [Unknown]
  - Nasopharyngitis [Unknown]
  - Skin lesion [Recovered/Resolved]
  - Rash [Unknown]
  - Feeling abnormal [Unknown]
  - Cough [Unknown]
  - Rhinorrhoea [Unknown]
  - Hypoacusis [Unknown]
  - Hypertension [Unknown]
  - Tinnitus [Unknown]

NARRATIVE: CASE EVENT DATE: 20250501
